FAERS Safety Report 19984443 (Version 2)
Quarter: 2021Q4

REPORT INFORMATION
  Report Type: Spontaneous
  Country: AU (occurrence: AU)
  Receive Date: 20211021
  Receipt Date: 20211112
  Transmission Date: 20220304
  Serious: Yes (Other)
  Sender: FDA-Public Use
  Company Number: AU-LUPIN PHARMACEUTICALS INC.-2021-20595

PATIENT
  Sex: Female

DRUGS (1)
  1. PHENELZINE SULFATE [Suspect]
     Active Substance: PHENELZINE SULFATE
     Indication: Social anxiety disorder
     Dosage: UNK
     Route: 065

REACTIONS (9)
  - Shock [Unknown]
  - Seizure [Unknown]
  - Muscular weakness [Unknown]
  - Muscle rigidity [Unknown]
  - Tremor [Unknown]
  - Headache [Unknown]
  - Fatigue [Unknown]
  - Somnolence [Unknown]
  - Product substitution issue [Unknown]
